FAERS Safety Report 15137866 (Version 5)
Quarter: 2018Q3

REPORT INFORMATION
  Report Type: Spontaneous
  Country: DE (occurrence: DE)
  Receive Date: 20180712
  Receipt Date: 20180921
  Transmission Date: 20181010
  Serious: Yes (Life-Threatening, Hospitalization, Other)
  Sender: FDA-Public Use
  Company Number: DE-ALLERGAN-1835028US

PATIENT
  Age: 24 Year
  Sex: Female

DRUGS (3)
  1. CITALOPRAM HYDROBROMIDE ? BP [Suspect]
     Active Substance: CITALOPRAM HYDROBROMIDE
     Indication: INTENTIONAL OVERDOSE
     Dosage: LARGE QUANTITY, UNKNOWN
     Route: 065
  2. PIPAMPERONE [Suspect]
     Active Substance: PIPAMPERONE
     Indication: INTENTIONAL OVERDOSE
     Dosage: LARGE QUANTITY, UNKNOWN
     Route: 065
  3. CITALOPRAM HYDROBROMIDE ? BP [Suspect]
     Active Substance: CITALOPRAM HYDROBROMIDE
     Indication: SUICIDAL IDEATION

REACTIONS (8)
  - Toxicity to various agents [Recovering/Resolving]
  - Intentional overdose [Unknown]
  - Long QT syndrome [Recovering/Resolving]
  - Ventricular fibrillation [Recovered/Resolved]
  - Seizure [Recovering/Resolving]
  - Ventricular arrhythmia [Recovering/Resolving]
  - Haemodynamic instability [Recovering/Resolving]
  - Metabolic disorder [Recovering/Resolving]
